FAERS Safety Report 7444826-9 (Version None)
Quarter: 2011Q2

REPORT INFORMATION
  Report Type: 
  Country: None (occurrence: None)
  Receive Date: 20110429
  Receipt Date: 20110413
  Transmission Date: 20111010
  Serious: No
  Sender: FDA-Public Use
  Company Number: US-B.I. PHARMACEUTICALS,INC./RIDGEFIELD-2011-BP-05413BP

PATIENT
  Sex: Male

DRUGS (2)
  1. TAMSULOSIN HCL [Suspect]
     Indication: PROSTATOMEGALY
     Dosage: 0.4 MG
     Dates: start: 20100301, end: 20100301
  2. TAMSULOSIN HCL [Suspect]
     Indication: DRUG THERAPY CHANGED

REACTIONS (3)
  - DYSURIA [None]
  - UNEVALUABLE EVENT [None]
  - DRUG INEFFECTIVE [None]
